FAERS Safety Report 6996345-1 (Version None)
Quarter: 2010Q3

REPORT INFORMATION
  Report Type: 
  Country: None (occurrence: None)
  Receive Date: 20100918
  Receipt Date: 20090220
  Transmission Date: 20110219
  Serious: No
  Sender: FDA-Public Use
  Company Number: US-WYE-H08023909

PATIENT
  Sex: Female
  Weight: 89.44 kg

DRUGS (4)
  1. EFFEXOR XR [Suspect]
     Indication: DEPRESSION
     Route: 048
     Dates: start: 20070901, end: 20081201
  2. EFFEXOR XR [Suspect]
     Indication: ANXIETY
     Route: 048
     Dates: start: 20081201, end: 20090124
  3. EFFEXOR XR [Suspect]
     Dosage: HALF OF A 37.5 MG TABLET DAILY
     Route: 048
     Dates: start: 20090125
  4. THYROID [Concomitant]

REACTIONS (5)
  - ASTHENIA [None]
  - DIZZINESS [None]
  - DRUG WITHDRAWAL SYNDROME [None]
  - FEELING ABNORMAL [None]
  - VISION BLURRED [None]
